FAERS Safety Report 9312086 (Version 2)
Quarter: 2014Q1

REPORT INFORMATION
  Report Type: Spontaneous
  Country: DK (occurrence: DK)
  Receive Date: 20130528
  Receipt Date: 20140124
  Transmission Date: 20141002
  Serious: Yes (Other)
  Sender: FDA-Public Use
  Company Number: DK-PFIZER INC-2013158276

PATIENT
  Sex: 0

DRUGS (1)
  1. SERTRALINE [Suspect]
     Dosage: UNK

REACTIONS (1)
  - Growth retardation [Unknown]
